FAERS Safety Report 8986113 (Version 1)
Quarter: 2012Q4

REPORT INFORMATION
  Report Type: Spontaneous
  Country: DK (occurrence: None)
  Receive Date: 20121217
  Receipt Date: 20121217
  Transmission Date: 20130627
  Serious: Yes (Hospitalization)
  Sender: FDA-Public Use
  Company Number: 2012MA014037

PATIENT
  Age: 86 Year
  Sex: Female

DRUGS (8)
  1. HYDROCHLOROTHIAZIDE [Suspect]
     Dosage: 1 DF
     Route: 048
     Dates: start: 20121023, end: 20121031
  2. FUROSEMIDE (FUROSEMIDE) [Suspect]
     Route: 042
     Dates: start: 20121027, end: 20121030
  3. OMEPRAZOLE (OMEPRAZOLE) [Suspect]
     Route: 048
     Dates: start: 20121027, end: 20121030
  4. NORMIX [Suspect]
     Dosage: 3 DF
     Route: 048
     Dates: start: 20121026, end: 20121030
  5. FOLINA [Concomitant]
  6. SOTALOL [Concomitant]
  7. ENOXAPARIN [Concomitant]
  8. MODURETIC [Concomitant]

REACTIONS (3)
  - Monocytosis [None]
  - Leukopenia [None]
  - Neutropenia [None]
